FAERS Safety Report 16463863 (Version 1)
Quarter: 2019Q2

REPORT INFORMATION
  Report Type: Spontaneous
  Country: GB (occurrence: GB)
  Receive Date: 20190621
  Receipt Date: 20190621
  Transmission Date: 20190711
  Serious: Yes (Other)
  Sender: FDA-Public Use
  Company Number: GB-SA-2017SA174139

PATIENT
  Age: 92 Year
  Sex: Female
  Weight: 73 kg

DRUGS (9)
  1. COCODAMOL [Concomitant]
     Active Substance: ACETAMINOPHEN\CODEINE PHOSPHATE
     Indication: ARTHRALGIA
     Dosage: UNK UNK,UNK
     Route: 065
     Dates: start: 20170410
  2. RAMIPRIL. [Concomitant]
     Active Substance: RAMIPRIL
     Dosage: 10 MG,QD
     Route: 065
     Dates: start: 20170208
  3. CLOPIDOGREL BISULFATE. [Suspect]
     Active Substance: CLOPIDOGREL BISULFATE
     Indication: TRANSIENT ISCHAEMIC ATTACK
     Dosage: 75 MG,UNK
     Route: 048
     Dates: start: 20170701, end: 20170811
  4. DOXAZOSIN [Concomitant]
     Active Substance: DOXAZOSIN\DOXAZOSIN MESYLATE
     Dosage: 2 MG,UNK
     Route: 065
     Dates: start: 20170811
  5. ALLOPURINOL. [Concomitant]
     Active Substance: ALLOPURINOL
     Dosage: 300 MG,QD
     Route: 065
     Dates: start: 20170208
  6. FUROSEMIDE. [Concomitant]
     Active Substance: FUROSEMIDE
     Dosage: 20 MG,QD
     Route: 065
     Dates: start: 20170208
  7. COCODAMOL [Concomitant]
     Active Substance: ACETAMINOPHEN\CODEINE PHOSPHATE
     Dosage: TAKE 1 OR 2 TABLETS FOUR TIMES A DAY. 30MG/500MG
     Route: 065
     Dates: start: 20170531
  8. LACTULOSE. [Concomitant]
     Active Substance: LACTULOSE
     Dosage: 3.1-3.7G/5ML
     Route: 048
     Dates: start: 20170208
  9. DOXAZOSIN [Concomitant]
     Active Substance: DOXAZOSIN\DOXAZOSIN MESYLATE
     Dosage: 1 MG, QD
     Route: 065
     Dates: start: 20170531

REACTIONS (7)
  - Epistaxis [Recovered/Resolved]
  - Contusion [Recovered/Resolved]
  - Oral contusion [Recovered/Resolved]
  - Gingival bleeding [Recovered/Resolved]
  - Petechiae [Unknown]
  - Rectal haemorrhage [Recovered/Resolved]
  - Thrombocytopenia [Recovering/Resolving]

NARRATIVE: CASE EVENT DATE: 20170811
